FAERS Safety Report 7779737-2 (Version None)
Quarter: 2011Q3

REPORT INFORMATION
  Report Type: 
  Country: None (occurrence: None)
  Receive Date: 20110927
  Receipt Date: 20110422
  Transmission Date: 20111222
  Serious: Yes (Hospitalization, Other)
  Sender: FDA-Public Use
  Company Number: US-ASTRAZENECA-2010SE04124

PATIENT
  Age: 25 Year
  Sex: Male

DRUGS (2)
  1. FENTORA [Concomitant]
  2. SEROQUEL [Suspect]
     Route: 048
     Dates: start: 20060101

REACTIONS (1)
  - PANCREATITIS CHRONIC [None]
